FAERS Safety Report 22647825 (Version 1)
Quarter: 2023Q2

REPORT INFORMATION
  Report Type: Spontaneous
  Country: US (occurrence: US)
  Receive Date: 20230628
  Receipt Date: 20230628
  Transmission Date: 20230722
  Serious: Yes (Other)
  Sender: FDA-Public Use
  Company Number: US-CATALYST PHARMACEUTICALS, INC-US-CATA-23-00159

PATIENT
  Sex: Female

DRUGS (7)
  1. FIRDAPSE [Suspect]
     Active Substance: AMIFAMPRIDINE PHOSPHATE
     Indication: Myasthenic syndrome
     Dosage: 10 MG TWICE DAILY FOR 1 WEEK, THEN 10 MG FOUR TIMES A DAY FOR 1 WEEK, THEN 20 MG FOUR TIMES A DAY
     Route: 048
     Dates: start: 20190418
  2. FIRDAPSE [Suspect]
     Active Substance: AMIFAMPRIDINE PHOSPHATE
     Dosage: 55 MG DAILY
     Route: 048
     Dates: start: 20201015
  3. FIRDAPSE [Suspect]
     Active Substance: AMIFAMPRIDINE PHOSPHATE
     Dosage: 2 TABLETS FOUR TIMES A DAY
     Route: 048
  4. GAMMAPLEX [Concomitant]
     Active Substance: HUMAN IMMUNOGLOBULIN G
     Indication: Product used for unknown indication
     Dosage: GAMMAPLEX 45 GRAMS IV INJECTION EVERY 3 WEEKS
     Route: 042
  5. ONDANSETRON [Concomitant]
     Active Substance: ONDANSETRON
     Indication: Product used for unknown indication
     Dosage: 4 MG EVERY 8 HOURS
     Route: 065
  6. ZINC [Concomitant]
     Active Substance: ZINC
     Indication: Product used for unknown indication
     Dosage: 50 MILLIGRAM, QD
     Route: 065
  7. VITAMIN D3 [Concomitant]
     Active Substance: CHOLECALCIFEROL
     Indication: Product used for unknown indication
     Dosage: 25 MICROGRAM, QD
     Route: 065

REACTIONS (4)
  - Small cell lung cancer extensive stage [Not Recovered/Not Resolved]
  - Small cell lung cancer metastatic [Not Recovered/Not Resolved]
  - Small cell lung cancer recurrent [Not Recovered/Not Resolved]
  - Urinary tract infection [Unknown]
